FAERS Safety Report 4850357-2 (Version None)
Quarter: 2005Q4

REPORT INFORMATION
  Report Type: 
  Country: None (occurrence: None)
  Receive Date: 20051207
  Receipt Date: 20051207
  Transmission Date: 20060501
  Serious: Yes (Other)
  Sender: FDA-Public Use
  Company Number: None

PATIENT
  Age: 22 Year
  Sex: Female
  Weight: 52.6173 kg

DRUGS (2)
  1. LEVAQUIN [Suspect]
     Indication: BRONCHITIS CHRONIC
     Dosage: 500MG ONE DAILY - G-TUBE
  2. LEVAQUIN [Suspect]
     Indication: LOWER RESPIRATORY TRACT INFECTION
     Dosage: 500MG ONE DAILY - G-TUBE

REACTIONS (1)
  - CONVULSION [None]
